FAERS Safety Report 6874081-X (Version None)
Quarter: 2010Q3

REPORT INFORMATION
  Report Type: 
  Country: None (occurrence: None)
  Receive Date: 20100723
  Receipt Date: 20090428
  Transmission Date: 20110219
  Serious: Yes (Life-Threatening, Hospitalization, Disabling, Other)
  Sender: FDA-Public Use
  Company Number: US-PFIZER INC-2009205363

PATIENT
  Age: 52 Year
  Sex: Male
  Weight: 81.633 kg

DRUGS (1)
  1. CHANTIX [Suspect]
     Indication: SMOKING CESSATION THERAPY
     Dosage: UNK
     Dates: start: 20080810, end: 20081110

REACTIONS (5)
  - ANGER [None]
  - MOOD SWINGS [None]
  - MYOCARDIAL INFARCTION [None]
  - WEIGHT INCREASED [None]
  - WITHDRAWAL SYNDROME [None]
